FAERS Safety Report 8559560-1 (Version None)
Quarter: 2012Q3

REPORT INFORMATION
  Report Type: 
  Country: None (occurrence: None)
  Receive Date: 20120727
  Receipt Date: 20120727
  Transmission Date: 20120928
  Serious: Yes (Hospitalization)
  Sender: FDA-Public Use
  Company Number: None

PATIENT
  Age: 67 Year
  Sex: Male

DRUGS (1)
  1. ISOVUE-300 [Suspect]
     Dosage: 96 ML
     Dates: start: 20120716, end: 20120716

REACTIONS (3)
  - PRURITUS [None]
  - CONTRAST MEDIA REACTION [None]
  - RASH [None]
